FAERS Safety Report 4390933-7 (Version None)
Quarter: 2004Q3

REPORT INFORMATION
  Report Type: 
  Country: None (occurrence: None)
  Receive Date: 20040702
  Receipt Date: 20040702
  Transmission Date: 20050211
  Serious: Yes (Hospitalization)
  Sender: FDA-Public Use
  Company Number: None

PATIENT
  Age: 22 Year
  Sex: Female

DRUGS (7)
  1. CYTOXAN [Suspect]
     Dosage: SEE IMAGE
     Dates: start: 20040331, end: 20040420
  2. METHOTREXATE [Suspect]
     Dosage: IV
     Route: 042
  3. ETOPOSIDE [Suspect]
  4. DACTINOMYCIN [Suspect]
  5. LEUCOVORIN 15 MG [Suspect]
  6. VINCRISTINE [Suspect]
  7. DOSS [Concomitant]

REACTIONS (3)
  - CHEST PAIN [None]
  - EJECTION FRACTION DECREASED [None]
  - SINUS BRADYCARDIA [None]
